FAERS Safety Report 4374877-2 (Version None)
Quarter: 2004Q2

REPORT INFORMATION
  Report Type: 
  Country: None (occurrence: None)
  Receive Date: 20040604
  Receipt Date: 20040525
  Transmission Date: 20050107
  Serious: Yes (Life-Threatening)
  Sender: FDA-Public Use
  Company Number: 2004214453JP

PATIENT
  Age: 48 Year
  Sex: Male
  Weight: 60 kg

DRUGS (6)
  1. DOXORUBICIN HYDROCHLORIDE [Suspect]
     Indication: B-CELL LYMPHOMA
     Dosage: 50 MG/M2 , CYCLIC, IV
     Route: 042
     Dates: start: 20020717, end: 20021201
  2. CYCLOPHOSPHAMIDE [Suspect]
     Indication: B-CELL LYMPHOMA
     Dosage: 750 MG/M2, CYCLIC, IV
     Route: 042
     Dates: start: 20020717, end: 20021201
  3. VINCRISTINE [Suspect]
     Indication: B-CELL LYMPHOMA
     Dosage: 2 MG, CYCLIC, IV
     Route: 042
     Dates: start: 20020717, end: 20021201
  4. DELTA-CORTEF [Suspect]
     Indication: B-CELL LYMPHOMA
     Dosage: 100 MG, CYCLIC, ORAL
     Route: 048
     Dates: start: 20020717, end: 20021201
  5. RITUXIMAB (RITUXIMAB) [Suspect]
     Indication: B-CELL LYMPHOMA
     Dosage: 375 MG, CYCLIC , IV
     Route: 042
     Dates: start: 20020717, end: 20021201
  6. G-CSF (GRANULOCYTE COLONY SITIMULATING FACTOR) [Concomitant]

REACTIONS (3)
  - HAEMOGLOBIN DECREASED [None]
  - SHOCK [None]
  - SMALL INTESTINAL HAEMORRHAGE [None]
